FAERS Safety Report 6906089-X (Version None)
Quarter: 2010Q3

REPORT INFORMATION
  Report Type: 
  Country: None (occurrence: None)
  Receive Date: 20100804
  Receipt Date: 20100727
  Transmission Date: 20110219
  Serious: Yes (Hospitalization, Other)
  Sender: FDA-Public Use
  Company Number: US-SANOFI-AVENTIS-2010SA044183

PATIENT
  Age: 49 Year
  Sex: Female

DRUGS (3)
  1. LANTUS [Suspect]
     Indication: TYPE 2 DIABETES MELLITUS
     Dosage: DOSE:45 UNIT(S)
     Route: 058
  2. SOLOSTAR [Suspect]
     Indication: TYPE 2 DIABETES MELLITUS
  3. ALL OTHER THERAPEUTIC PRODUCTS [Concomitant]

REACTIONS (3)
  - HYPERGLYCAEMIA [None]
  - SARCOIDOSIS [None]
  - VISUAL IMPAIRMENT [None]
